FAERS Safety Report 4895211-5 (Version None)
Quarter: 2006Q1

REPORT INFORMATION
  Report Type: 
  Country: None (occurrence: None)
  Receive Date: 20060125
  Receipt Date: 20060112
  Transmission Date: 20060701
  Serious: Yes (Disabling, Other)
  Sender: FDA-Public Use
  Company Number: 2006003997

PATIENT
  Age: 5 Year
  Sex: Female

DRUGS (2)
  1. GENOTROPIN [Suspect]
     Indication: BODY HEIGHT BELOW NORMAL
     Dosage: 0.4 MG (DAILY), SUBCUTANEOUS
     Route: 058
     Dates: start: 20050813, end: 20051201
  2. GENOTROPIN [Suspect]
     Indication: BODY HEIGHT BELOW NORMAL
     Dosage: 0.4 MG (DAILY), SUBCUTANEOUS
     Route: 058
     Dates: start: 20060111

REACTIONS (2)
  - INTERMITTENT CLAUDICATION [None]
  - STRESS FRACTURE [None]
